FAERS Safety Report 16398798 (Version 1)
Quarter: 2019Q2

REPORT INFORMATION
  Report Type: Spontaneous
  Country: US (occurrence: US)
  Receive Date: 20190606
  Receipt Date: 20190606
  Transmission Date: 20190711
  Serious: No
  Sender: FDA-Public Use
  Company Number: US-009507513-1906USA001805

PATIENT
  Sex: Male
  Weight: 77.1 kg

DRUGS (1)
  1. ZOCOR [Suspect]
     Active Substance: SIMVASTATIN
     Indication: ALOPECIA
     Dosage: 10/40 TABLETS BY MOUTH ONCE DAILY
     Route: 048

REACTIONS (1)
  - Product use in unapproved indication [Unknown]
